FAERS Safety Report 22981572 (Version 2)
Quarter: 2024Q2

REPORT INFORMATION
  Report Type: Spontaneous
  Country: US (occurrence: US)
  Receive Date: 20230925
  Receipt Date: 20240515
  Transmission Date: 20240715
  Serious: Yes (Other)
  Sender: FDA-Public Use
  Company Number: US-MARINUS PHARMACEUTICALS, INC.-MAR2023000116

PATIENT

DRUGS (7)
  1. ZTALMY [Suspect]
     Active Substance: GANAXOLONE
     Indication: Seizure
     Dosage: 3 MILLILITER, TID
     Route: 048
     Dates: start: 202308
  2. ZTALMY [Suspect]
     Active Substance: GANAXOLONE
     Dosage: 6 MILLILITER, TID
     Route: 048
  3. ZTALMY [Suspect]
     Active Substance: GANAXOLONE
     Dosage: 7 MILLILITER, TID
     Route: 048
  4. CLOBAZAM [Concomitant]
     Active Substance: CLOBAZAM
     Indication: Product used for unknown indication
     Dosage: UNK
     Route: 065
  5. EPIDIOLEX [Concomitant]
     Active Substance: CANNABIDIOL
     Indication: Product used for unknown indication
     Dosage: UNK
     Route: 065
  6. GABAPENTIN [Concomitant]
     Active Substance: GABAPENTIN
     Indication: Product used for unknown indication
     Dosage: UNK
     Route: 065
  7. ZONISAMIDE [Concomitant]
     Active Substance: ZONISAMIDE
     Indication: Product used for unknown indication
     Dosage: UNK
     Route: 065

REACTIONS (2)
  - Generalised tonic-clonic seizure [Unknown]
  - Somnolence [Unknown]

NARRATIVE: CASE EVENT DATE: 20230801
